FAERS Safety Report 9352927 (Version 1)
Quarter: 2013Q2

REPORT INFORMATION
  Report Type: Spontaneous
  Country: US (occurrence: US)
  Receive Date: 20130618
  Receipt Date: 20130618
  Transmission Date: 20140414
  Serious: Yes (Hospitalization)
  Sender: FDA-Public Use
  Company Number: US-SANOFI-AVENTIS-2013SA060287

PATIENT
  Age: 57 Year
  Sex: Female
  Weight: 61.8 kg

DRUGS (12)
  1. LASIX [Suspect]
     Dosage: 20-40 MG PO DAILY PRN
     Route: 048
  2. CRIZOTINIB [Suspect]
  3. DECADRON [Concomitant]
     Route: 048
  4. GABAPENTIN [Concomitant]
     Route: 048
  5. LEVETIRACETAM [Concomitant]
     Route: 048
  6. ACETAMINOPHEN [Concomitant]
     Dosage: 1-2 TAB PO Q4 - 6 HOUR PRN
  7. PREDNISONE [Concomitant]
     Route: 048
  8. PERCOCET [Concomitant]
     Dosage: 1 TABLET Q. 4 HOURS P.R.N.
  9. MS CONTIN [Concomitant]
     Route: 048
  10. XALKORI [Concomitant]
     Dosage: ALTERNATIVE DAYS
  11. LASIX [Concomitant]
     Dosage: 20- 40 MG DAILY AS NEEDED.
  12. KEPPRA [Concomitant]

REACTIONS (2)
  - Pyrexia [Recovered/Resolved]
  - Dyspnoea [Recovering/Resolving]
